FAERS Safety Report 9470442 (Version 1)
Quarter: 2013Q3

REPORT INFORMATION
  Report Type: Spontaneous
  Country: US (occurrence: None)
  Receive Date: 20130820
  Receipt Date: 20130820
  Transmission Date: 20140515
  Serious: No
  Sender: FDA-Public Use
  Company Number: None

PATIENT
  Age: 31 Year
  Sex: Female
  Weight: 63.05 kg

DRUGS (1)
  1. PLAN B ONE-STEP [Suspect]
     Dates: start: 20130817, end: 20130817

REACTIONS (1)
  - Diarrhoea [None]
